FAERS Safety Report 24715265 (Version 2)
Quarter: 2025Q3

REPORT INFORMATION
  Report Type: Spontaneous
  Country: US (occurrence: US)
  Receive Date: 20241210
  Receipt Date: 20250815
  Transmission Date: 20251021
  Serious: Yes (Other)
  Sender: COOPERSURGICAL
  Company Number: US-COOPERSURGICAL, INC.-2024CPS003785

PATIENT
  Age: 21 Year
  Sex: Female
  Weight: 65.76 kg

DRUGS (3)
  1. PARAGARD T 380A [Suspect]
     Active Substance: COPPER
     Indication: Contraception
     Route: 015
     Dates: start: 20070219, end: 20160313
  2. UNSPECIFIED INGREDIENT [Concomitant]
     Active Substance: UNSPECIFIED INGREDIENT
  3. UNSPECIFIED INGREDIENT [Concomitant]
     Active Substance: UNSPECIFIED INGREDIENT

REACTIONS (22)
  - Reproductive complication associated with device [Unknown]
  - High risk pregnancy [Recovered/Resolved]
  - Premature separation of placenta [Recovered/Resolved]
  - Ectopic pregnancy [Unknown]
  - Salpingectomy [None]
  - Female sterilisation [Unknown]
  - Haemorrhage in pregnancy [Recovered/Resolved]
  - Blood loss anaemia [Recovered/Resolved]
  - Ovarian cyst [Unknown]
  - Uterine haemorrhage [Unknown]
  - Adnexa uteri cyst [Recovered/Resolved]
  - Device breakage [Recovered/Resolved]
  - Foreign body in reproductive tract [Recovered/Resolved]
  - Complication of device removal [Recovered/Resolved]
  - Embedded device [Recovered/Resolved]
  - Post procedural fever [Recovered/Resolved]
  - Emotional disorder [Unknown]
  - Fallopian tube adhesion [Unknown]
  - Urinary tract infection [Unknown]
  - Abnormal uterine bleeding [Unknown]
  - Vaginal infection [Unknown]
  - Endometritis [Unknown]

NARRATIVE: CASE EVENT DATE: 20070228
